FAERS Safety Report 24131561 (Version 1)
Quarter: 2024Q3

REPORT INFORMATION
  Report Type: Report from Study
  Country: FR (occurrence: FR)
  Receive Date: 20240724
  Receipt Date: 20240724
  Transmission Date: 20241017
  Serious: Yes (Other)
  Sender: AUROBINDO
  Company Number: FR-AUROBINDO-AUR-APL-2024-036506

PATIENT
  Age: 14 Year

DRUGS (1)
  1. METHYLPHENIDATE [Suspect]
     Active Substance: METHYLPHENIDATE
     Indication: Attention deficit hyperactivity disorder
     Dosage: UNK
     Route: 065

REACTIONS (8)
  - Tricuspid valve incompetence [Unknown]
  - Growth retardation [Unknown]
  - Tourette^s disorder [Unknown]
  - Blood cholesterol increased [Unknown]
  - Transaminases increased [Unknown]
  - Disturbance in attention [Unknown]
  - Tachycardia [Unknown]
  - Tic [Unknown]
